FAERS Safety Report 6550974-8 (Version None)
Quarter: 2010Q1

REPORT INFORMATION
  Report Type: 
  Country: None (occurrence: None)
  Receive Date: 20100125
  Receipt Date: 20100113
  Transmission Date: 20100710
  Serious: Yes (Death, Life-Threatening)
  Sender: FDA-Public Use
  Company Number: JP-PFIZER INC-2009303265

PATIENT
  Age: 64 Year
  Sex: Male
  Weight: 83 kg

DRUGS (7)
  1. SUNITINIB MALATE [Suspect]
     Indication: RENAL CELL CARCINOMA
     Dosage: 50 MG, 1X/DAY
     Route: 048
     Dates: start: 20090611
  2. DECADRON [Concomitant]
     Route: 048
     Dates: start: 20090604
  3. TEGRETOL [Concomitant]
     Route: 048
     Dates: start: 20090520
  4. PARIET [Concomitant]
     Route: 048
  5. PROMAC /JPN/ [Concomitant]
     Route: 048
  6. VALSARTAN [Concomitant]
     Route: 048
  7. ADALAT [Concomitant]
     Route: 048

REACTIONS (4)
  - DISEASE PROGRESSION [None]
  - GASTRIC PERFORATION [None]
  - PERITONITIS [None]
  - RENAL CELL CARCINOMA [None]
